FAERS Safety Report 6164291-1 (Version None)
Quarter: 2009Q2

REPORT INFORMATION
  Report Type: 
  Country: None (occurrence: None)
  Receive Date: 20090422
  Receipt Date: 20090407
  Transmission Date: 20091009
  Serious: Yes (Death)
  Sender: FDA-Public Use
  Company Number: IT-GENENTECH-280652

PATIENT
  Sex: Male

DRUGS (3)
  1. BEVACIZUMAB [Suspect]
     Indication: COLORECTAL CANCER METASTATIC
     Dosage: 490 MG, Q3W
     Route: 042
     Dates: start: 20050830
  2. CAPECITABINE [Suspect]
     Indication: COLORECTAL CANCER METASTATIC
     Dosage: 3300 MG, Q2W
     Route: 048
     Dates: start: 20050831
  3. IRINOTECAN HCL [Suspect]
     Indication: COLORECTAL CANCER METASTATIC
     Dosage: 410 MG, Q3W
     Route: 042
     Dates: start: 20050830

REACTIONS (1)
  - SUDDEN DEATH [None]
